FAERS Safety Report 12226312 (Version 1)
Quarter: 2016Q1

REPORT INFORMATION
  Report Type: Spontaneous
  Country: CN (occurrence: CN)
  Receive Date: 20160331
  Receipt Date: 20160331
  Transmission Date: 20160526
  Serious: Yes (Other)
  Sender: FDA-Public Use
  Company Number: CN-FRESENIUS KABI-FK201601597

PATIENT
  Age: 22 Year
  Sex: Female

DRUGS (2)
  1. VITALIPID ADULT (VITAMINS) (VITAMINS) [Suspect]
     Active Substance: ERGOCALCIFEROL\PHYTONADIONE\RETINOL\TOCOPHEROL
     Indication: NUTRITIONAL SUPPLEMENTATION
     Route: 041
     Dates: start: 20150714, end: 20150716
  2. INTRALIPID [Suspect]
     Active Substance: EGG PHOSPHOLIPIDS\GLYCERIN\SOYBEAN OIL
     Indication: NUTRITIONAL SUPPLEMENTATION
     Route: 041
     Dates: start: 20150714, end: 20150716

REACTIONS (3)
  - Pyrexia [Recovered/Resolved]
  - Exposure during pregnancy [Recovered/Resolved]
  - Chills [Recovered/Resolved]

NARRATIVE: CASE EVENT DATE: 20150716
